FAERS Safety Report 16804794 (Version 1)
Quarter: 2019Q3

REPORT INFORMATION
  Report Type: Spontaneous
  Country: US (occurrence: US)
  Receive Date: 20190724
  Receipt Date: 20190724
  Transmission Date: 20191005
  Serious: No
  Sender: FDA-Public Use
  Company Number: None

PATIENT
  Age: 80 Year
  Sex: Male
  Weight: 104.33 kg

DRUGS (12)
  1. MIRTAZAPINE. [Concomitant]
     Active Substance: MIRTAZAPINE
  2. SERTRALINE [Concomitant]
     Active Substance: SERTRALINE HYDROCHLORIDE
  3. AOTVASTATIN [Concomitant]
  4. MEHYLPHENIDATE [Concomitant]
  5. VITAMIN B [Concomitant]
     Active Substance: VITAMIN B
  6. MULTIVITAMINS [Concomitant]
     Active Substance: VITAMINS
  7. CLONAZEPAM. [Concomitant]
     Active Substance: CLONAZEPAM
  8. FISH OIL [Concomitant]
     Active Substance: FISH OIL
  9. ABILIFY [Concomitant]
     Active Substance: ARIPIPRAZOLE
  10. ALTACHLORE SODIUM CHLORIDE HYPERTONICITY [Suspect]
     Active Substance: SODIUM CHLORIDE
     Indication: PRODUCT USED FOR UNKNOWN INDICATION
     Dosage: ?          QUANTITY:15 ML MILLILITRE(S);?
     Route: 047
     Dates: start: 201906, end: 20190724
  11. PREMIDONE [Concomitant]
  12. VITAMIN E [Concomitant]
     Active Substance: .ALPHA.-TOCOPHEROL

REACTIONS (4)
  - Instillation site reaction [None]
  - Eyelid margin crusting [None]
  - Suspected product contamination [None]
  - Recalled product administered [None]

NARRATIVE: CASE EVENT DATE: 20190620
